FAERS Safety Report 8239913-1 (Version None)
Quarter: 2012Q1

REPORT INFORMATION
  Report Type: 
  Country: None (occurrence: None)
  Receive Date: 20120328
  Receipt Date: 20120322
  Transmission Date: 20120608
  Serious: Yes (Other)
  Sender: FDA-Public Use
  Company Number: US-AMGEN-USASP2012015766

PATIENT
  Age: 33 Year
  Sex: Female
  Weight: 71.202 kg

DRUGS (3)
  1. PREDNISONE TAB [Concomitant]
     Dosage: UNK
  2. ENBREL [Suspect]
     Dosage: 25 MG, 2 TIMES/WK
     Dates: start: 20110601, end: 20110901
  3. ENBREL [Suspect]
     Indication: ARTHROPATHY
     Dosage: 25 MG, Q2WK
     Dates: start: 20110901, end: 20111001

REACTIONS (2)
  - PAIN [None]
  - ABORTION SPONTANEOUS [None]
